FAERS Safety Report 8191071 (Version 2)
Quarter: 2012Q4

REPORT INFORMATION
  Report Type: 
  Country: US (occurrence: US)
  Receive Date: 20111020
  Receipt Date: 20121218
  Transmission Date: 20130627
  Serious: Yes (Other)
  Sender: FDA-Public Use
  Company Number: US-BRISTOL-MYERS SQUIBB COMPANY-16168270

PATIENT
  Age: 5 None
  Sex: Male

DRUGS (2)
  1. ABILIFY [Suspect]
     Indication: DEPRESSION
     Dosage: approximately fourth months ago
     Dates: start: 2011
  2. VYVANSE [Suspect]

REACTIONS (2)
  - Panic attack [Recovered/Resolved]
  - Self injurious behaviour [Recovered/Resolved]
